FAERS Safety Report 24758949 (Version 2)
Quarter: 2025Q1

REPORT INFORMATION
  Report Type: Spontaneous
  Country: RO (occurrence: RO)
  Receive Date: 20241220
  Receipt Date: 20250117
  Transmission Date: 20250409
  Serious: Yes (Other)
  Sender: SAMSUNG BIOEPIS
  Company Number: RO-SAMSUNG BIOEPIS-SB-2024-38381

PATIENT
  Age: 69 Year
  Sex: Male
  Weight: 100 kg

DRUGS (3)
  1. IMRALDI [Suspect]
     Active Substance: ADALIMUMAB
     Indication: Rheumatoid arthritis
     Dosage: 40 MG/0.4 ML; 10 DOSES RECEIVED;
     Route: 058
     Dates: start: 20240508, end: 20241011
  2. TAMSULOSIN HYDROCHLORIDE [Concomitant]
     Active Substance: TAMSULOSIN HYDROCHLORIDE
     Indication: Benign prostatic hyperplasia
  3. ATORVASTATIN CALCIUM [Concomitant]
     Active Substance: ATORVASTATIN CALCIUM
     Indication: Dyslipidaemia

REACTIONS (7)
  - Lung neoplasm malignant [Not Recovered/Not Resolved]
  - Hilar lymphadenopathy [Not Recovered/Not Resolved]
  - Haemangioma of spleen [Not Recovered/Not Resolved]
  - Renal cyst [Not Recovered/Not Resolved]
  - Bronchial carcinoma [Not Recovered/Not Resolved]
  - Tracheal cancer [Not Recovered/Not Resolved]
  - Bacterial infection [Not Recovered/Not Resolved]

NARRATIVE: CASE EVENT DATE: 20241122
